FAERS Safety Report 23880208 (Version 2)
Quarter: 2024Q4

REPORT INFORMATION
  Report Type: Spontaneous
  Country: CN (occurrence: CN)
  Receive Date: 20240521
  Receipt Date: 20241108
  Transmission Date: 20250114
  Serious: Yes (Other)
  Sender: PAREXEL
  Company Number: CN-SHANGHAI JUNSHI BIOSCIENCES CO., LTD.-CN2024010057

PATIENT

DRUGS (6)
  1. TORIPALIMAB [Suspect]
     Active Substance: TORIPALIMAB
     Indication: Gastric cancer
     Dosage: 360 MG (D1), Q3W
     Route: 041
     Dates: start: 20240227, end: 20240227
  2. TORIPALIMAB [Suspect]
     Active Substance: TORIPALIMAB
     Dosage: 360 MG (D1), Q3W
     Route: 041
     Dates: start: 20240509, end: 20240609
  3. OXALIPLATIN [Suspect]
     Active Substance: OXALIPLATIN
     Indication: Gastric cancer
     Dosage: 200 MG (D1), Q3W
     Route: 041
     Dates: start: 20240227, end: 20240227
  4. OXALIPLATIN [Suspect]
     Active Substance: OXALIPLATIN
     Dosage: 200 MG (D1), Q3W
     Route: 041
     Dates: start: 20240509, end: 20240509
  5. GIMERACIL\OTERACIL\TEGAFUR [Suspect]
     Active Substance: GIMERACIL\OTERACIL POTASSIUM\TEGAFUR
     Indication: Gastric cancer
     Dosage: 60 MG (D1-D14), BID,EVERY 3 WEEKS AS A CYCLE
     Route: 048
     Dates: start: 20240227, end: 20240312
  6. GIMERACIL\OTERACIL\TEGAFUR [Suspect]
     Active Substance: GIMERACIL\OTERACIL POTASSIUM\TEGAFUR
     Dosage: 60 MG (D1-D14), BID, EVERY 3 WEEKS AS A CYCLE
     Route: 048
     Dates: start: 20240509, end: 20240523

REACTIONS (1)
  - Myelosuppression [Recovering/Resolving]

NARRATIVE: CASE EVENT DATE: 20240317
